FAERS Safety Report 5084660-0 (Version None)
Quarter: 2006Q3

REPORT INFORMATION
  Report Type: 
  Country: None (occurrence: None)
  Receive Date: 20060818
  Receipt Date: 20060818
  Transmission Date: 20061208
  Serious: Yes (Other)
  Sender: FDA-Public Use
  Company Number: None

PATIENT
  Sex: Female
  Weight: 68.0396 kg

DRUGS (1)
  1. TRILEPTAL [Suspect]
     Indication: GRAND MAL CONVULSION
     Dosage: 300MG   TWICE DAILY  PO
     Route: 048
     Dates: start: 20060401, end: 20060814

REACTIONS (7)
  - DRUG HYPERSENSITIVITY [None]
  - ERYTHEMA [None]
  - LYMPHADENOPATHY [None]
  - RASH PRURITIC [None]
  - SCAB [None]
  - SKIN DISCOLOURATION [None]
  - SKIN EXFOLIATION [None]
